FAERS Safety Report 7126310-5 (Version None)
Quarter: 2010Q4

REPORT INFORMATION
  Report Type: 
  Country: None (occurrence: None)
  Receive Date: 20101129
  Receipt Date: 20100112
  Transmission Date: 20110411
  Serious: No
  Sender: FDA-Public Use
  Company Number: A0839259A

PATIENT
  Age: 88 Year
  Sex: Female

DRUGS (3)
  1. LANOXIN [Suspect]
     Dosage: 1TAB UNKNOWN
     Route: 048
     Dates: start: 20061001
  2. DIOVAN [Concomitant]
  3. CONCURRENT MEDICATIONS [Concomitant]

REACTIONS (7)
  - BALANCE DISORDER [None]
  - DIZZINESS [None]
  - FALL [None]
  - FLUID RETENTION [None]
  - GAIT DISTURBANCE [None]
  - ROTATOR CUFF SYNDROME [None]
  - WALKING AID USER [None]
